FAERS Safety Report 8351480-0 (Version None)
Quarter: 2012Q2

REPORT INFORMATION
  Report Type: 
  Country: None (occurrence: None)
  Receive Date: 20120510
  Receipt Date: 20120502
  Transmission Date: 20120825
  Serious: Yes (Other)
  Sender: FDA-Public Use
  Company Number: US-ASTRAZENECA-2012SE22557

PATIENT
  Age: 56 Year
  Sex: Female
  Weight: 118.8 kg

DRUGS (9)
  1. SEROQUEL XR [Suspect]
     Route: 048
  2. SEROQUEL XR [Suspect]
     Route: 048
  3. PREVACID [Concomitant]
     Indication: HIATUS HERNIA
  4. SEROQUEL XR [Suspect]
     Indication: BIPOLAR DISORDER
     Route: 048
     Dates: start: 20090101
  5. SEROQUEL XR [Suspect]
     Route: 048
  6. LUVOX [Concomitant]
     Indication: OBSESSIVE-COMPULSIVE DISORDER
     Dates: start: 20110101
  7. SEROQUEL XR [Suspect]
     Indication: MANIA
     Route: 048
     Dates: start: 20090101
  8. SEROQUEL XR [Suspect]
     Route: 048
  9. LITHIUM CARBONATE [Concomitant]
     Indication: BIPOLAR DISORDER
     Dates: start: 20090101

REACTIONS (16)
  - WITHDRAWAL SYNDROME [None]
  - PAIN [None]
  - LOSS OF CONSCIOUSNESS [None]
  - BIPOLAR DISORDER [None]
  - DIARRHOEA [None]
  - PSYCHOTIC DISORDER [None]
  - HYPERSOMNIA [None]
  - AMNESIA [None]
  - HEADACHE [None]
  - MALAISE [None]
  - ABDOMINAL DISCOMFORT [None]
  - INTENTIONAL DRUG MISUSE [None]
  - INFLUENZA LIKE ILLNESS [None]
  - INSOMNIA [None]
  - WEIGHT INCREASED [None]
  - VOMITING [None]
